FAERS Safety Report 10526453 (Version 1)
Quarter: 2014Q4

REPORT INFORMATION
  Report Type: Spontaneous
  Country: GB (occurrence: GB)
  Receive Date: 20141020
  Receipt Date: 20141020
  Transmission Date: 20150528
  Serious: Yes (Hospitalization)
  Sender: FDA-Public Use
  Company Number: PHHY2014GB134158

PATIENT
  Age: 65 Year
  Sex: Male
  Weight: 80 kg

DRUGS (2)
  1. CANDESARTAN CILEXETIL. [Suspect]
     Active Substance: CANDESARTAN CILEXETIL
     Indication: ATRIAL FIBRILLATION
     Route: 048
     Dates: start: 20140926
  2. XARELTO [Suspect]
     Active Substance: RIVAROXABAN
     Indication: ATRIAL FIBRILLATION
     Route: 048
     Dates: start: 20140904

REACTIONS (1)
  - Post procedural haematoma [Recovering/Resolving]

NARRATIVE: CASE EVENT DATE: 20140913
